FAERS Safety Report 6242199-0 (Version None)
Quarter: 2009Q2

REPORT INFORMATION
  Report Type: 
  Country: None (occurrence: None)
  Receive Date: 20090622
  Receipt Date: 20090622
  Transmission Date: 20091009
  Serious: No
  Sender: FDA-Public Use
  Company Number: None

PATIENT
  Age: 77 Year
  Sex: Female

DRUGS (1)
  1. MELOXICAM [Suspect]
     Indication: NECK PAIN
     Dosage: 7.5MG ONE TABLET DAILY RECORDS GO BACK TO 01/08

REACTIONS (2)
  - TONGUE EXFOLIATION [None]
  - TONGUE HAEMORRHAGE [None]
